FAERS Safety Report 5200978-2 (Version None)
Quarter: 2006Q4

REPORT INFORMATION
  Report Type: 
  Country: None (occurrence: None)
  Receive Date: 20061221
  Receipt Date: 20061212
  Transmission Date: 20070319
  Serious: Yes (Hospitalization)
  Sender: FDA-Public Use
  Company Number: WSDF_00594

PATIENT
  Sex: Male

DRUGS (1)
  1. WINRHO SDF [Suspect]

REACTIONS (2)
  - HAEMOLYSIS [None]
  - SPLENOMEGALY [None]
